FAERS Safety Report 19048226 (Version 1)
Quarter: 2021Q1

REPORT INFORMATION
  Report Type: Spontaneous
  Country: US (occurrence: US)
  Receive Date: 20210324
  Receipt Date: 20210324
  Transmission Date: 20210420
  Serious: Yes (Other)
  Sender: FDA-Public Use
  Company Number: US-AUROBINDO-AUR-APL-2021-009967

PATIENT
  Age: 14 Year
  Sex: Female
  Weight: 42.4 kg

DRUGS (2)
  1. AMOXICILLIN. [Suspect]
     Active Substance: AMOXICILLIN
     Indication: BREAST ABSCESS
  2. AMOXICILLIN. [Suspect]
     Active Substance: AMOXICILLIN
     Indication: ACTINOMYCOSIS
     Dosage: 1000 MILLIGRAM, 3 TIMES A DAY ((70 MG/KG/DAY))
     Route: 048

REACTIONS (1)
  - Clostridium difficile colitis [Unknown]
